FAERS Safety Report 11610710 (Version 4)
Quarter: 2016Q1

REPORT INFORMATION
  Report Type: Spontaneous
  Country: US (occurrence: US)
  Receive Date: 20151008
  Receipt Date: 20160202
  Transmission Date: 20160525
  Serious: No
  Sender: FDA-Public Use
  Company Number: US-009507513-1509USA013156

PATIENT
  Age: 25 Year
  Sex: Female
  Weight: 51.7 kg

DRUGS (3)
  1. NEXPLANON [Suspect]
     Active Substance: ETONOGESTREL
     Indication: CONTRACEPTION
     Dosage: UNK
     Route: 059
     Dates: start: 2013
  2. ETONOGESTREL IMPLANT- UNKNOWN [Concomitant]
     Active Substance: ETONOGESTREL
     Indication: CONTRACEPTION
     Dosage: UNK
     Route: 059
     Dates: start: 2010, end: 2013
  3. NEXPLANON [Suspect]
     Active Substance: ETONOGESTREL
     Dosage: UNK
     Route: 059

REACTIONS (5)
  - Product colour issue [Unknown]
  - Menstrual disorder [Unknown]
  - Progesterone increased [Recovered/Resolved]
  - Medication error [Unknown]
  - Menstruation normal [Not Recovered/Not Resolved]

NARRATIVE: CASE EVENT DATE: 2013
